FAERS Safety Report 5046024-5 (Version None)
Quarter: 2006Q3

REPORT INFORMATION
  Report Type: 
  Country: None (occurrence: None)
  Receive Date: 20060710
  Receipt Date: 20060614
  Transmission Date: 20061208
  Serious: Yes (Hospitalization, Other)
  Sender: FDA-Public Use
  Company Number: PHEH2006US07854

PATIENT
  Age: 64 Year
  Sex: Female
  Weight: 77.551 kg

DRUGS (8)
  1. ZOMETA [Suspect]
     Indication: MULTIPLE MYELOMA
     Dosage: 4 UNK, ONCE/SINGLE
     Dates: start: 20060405
  2. NEURONTIN [Concomitant]
  3. ACTONEL [Concomitant]
     Dosage: 35MG QWK
     Dates: end: 20060417
  4. SPIRONOLACTONE [Concomitant]
     Dosage: 100MG UNK
     Dates: end: 20060417
  5. ASPIRIN [Concomitant]
  6. FOLTX [Concomitant]
  7. FENTANYL TRANSDERMAL SYSTEM [Concomitant]
     Indication: PAIN
     Dosage: 50MCG UNK
     Dates: start: 20060215, end: 20060417
  8. AVANDAMET [Concomitant]
     Dosage: 200MG UNK
     Dates: end: 20060417

REACTIONS (5)
  - BIOPSY KIDNEY ABNORMAL [None]
  - BLOOD CREATININE INCREASED [None]
  - DIALYSIS [None]
  - NEPHRITIS INTERSTITIAL [None]
  - RENAL FAILURE ACUTE [None]
